FAERS Safety Report 8523018-6 (Version None)
Quarter: 2012Q3

REPORT INFORMATION
  Report Type: 
  Country: None (occurrence: None)
  Receive Date: 20120720
  Receipt Date: 20120713
  Transmission Date: 20120928
  Serious: Yes (Hospitalization)
  Sender: FDA-Public Use
  Company Number: US-BRISTOL-MYERS SQUIBB COMPANY-16766925

PATIENT
  Age: 38 Year
  Sex: Male
  Weight: 82 kg

DRUGS (4)
  1. ZOCOR [Concomitant]
  2. ABILIFY [Suspect]
     Indication: BIPOLAR DISORDER
     Dosage: FEW DAYS,INTD AND RESTD ON JAN2012
     Dates: start: 20110901, end: 20120101
  3. KLONOPIN [Concomitant]
  4. SYNTHROID [Concomitant]

REACTIONS (1)
  - MANIA [None]
